FAERS Safety Report 4427494-X (Version None)
Quarter: 2004Q3

REPORT INFORMATION
  Report Type: 
  Country: None (occurrence: None)
  Receive Date: 20040812
  Receipt Date: 20040805
  Transmission Date: 20050211
  Serious: Yes (Death)
  Sender: FDA-Public Use
  Company Number: 2004-118643-NL

PATIENT
  Age: 4 Year
  Sex: Female

DRUGS (3)
  1. DEXAMETHASONE [Suspect]
     Indication: ACUTE LYMPHOCYTIC LEUKAEMIA
     Dosage: 65 MG
  2. VINCRISTINE [Suspect]
     Indication: ACUTE LYMPHOCYTIC LEUKAEMIA
     Dosage: 1.5 MG
  3. ASPARAGINASE [Suspect]
     Indication: ACUTE LYMPHOCYTIC LEUKAEMIA
     Dosage: 6000 IU

REACTIONS (21)
  - BIOPSY KIDNEY ABNORMAL [None]
  - BLOOD LACTATE DEHYDROGENASE INCREASED [None]
  - CELLULITIS [None]
  - CEREBRAL HAEMORRHAGE [None]
  - CIRCULATORY COLLAPSE [None]
  - COMA [None]
  - COMPUTERISED TOMOGRAM ABNORMAL [None]
  - ESCHERICHIA BACTERAEMIA [None]
  - HAEMODIALYSIS [None]
  - HAEMOLYTIC URAEMIC SYNDROME [None]
  - HAPTOGLOBIN DECREASED [None]
  - HEMIPARESIS [None]
  - KIDNEY ENLARGEMENT [None]
  - NEPHRITIS INTERSTITIAL [None]
  - NERVOUS SYSTEM DISORDER [None]
  - NEUTROPENIA [None]
  - RENAL IMPAIRMENT [None]
  - RENAL TUBULAR NECROSIS [None]
  - SIMPLE PARTIAL SEIZURES [None]
  - SOMNOLENCE [None]
  - URINE OUTPUT DECREASED [None]
